FAERS Safety Report 11173738 (Version 1)
Quarter: 2015Q2

REPORT INFORMATION
  Report Type: Spontaneous
  Country: SE (occurrence: SE)
  Receive Date: 20150609
  Receipt Date: 20150609
  Transmission Date: 20150821
  Serious: Yes (Other)
  Sender: FDA-Public Use
  Company Number: SE-009507513-1506SWE002234

PATIENT
  Age: 75 Year

DRUGS (2)
  1. VANCOMYCIN [Concomitant]
     Active Substance: VANCOMYCIN
  2. DAPTOMYCIN. [Suspect]
     Active Substance: DAPTOMYCIN
     Indication: PRODUCT USED FOR UNKNOWN INDICATION
     Dosage: UNK
     Route: 065

REACTIONS (1)
  - Hearing impaired [Unknown]
